FAERS Safety Report 6780015-9 (Version None)
Quarter: 2010Q2

REPORT INFORMATION
  Report Type: 
  Country: None (occurrence: None)
  Receive Date: 20100618
  Receipt Date: 20100609
  Transmission Date: 20101027
  Serious: Yes (Disabling)
  Sender: FDA-Public Use
  Company Number: GB-BRISTOL-MYERS SQUIBB COMPANY-15150097

PATIENT
  Age: 65 Year
  Sex: Male

DRUGS (9)
  1. CARBIDOPA + LEVODOPA CR [Suspect]
     Indication: PARKINSON'S DISEASE
     Dosage: TABS
     Route: 048
     Dates: start: 20090801
  2. AMITRIPTYLINE HCL [Interacting]
     Indication: DEPRESSION
     Route: 065
  3. AMITRIPTYLINE HCL [Interacting]
     Indication: PAIN
     Route: 065
  4. AMITRIPTYLINE HCL [Interacting]
     Indication: SLEEP DISORDER
     Route: 065
  5. ATORVASTATIN CALCIUM [Interacting]
     Route: 065
  6. BUPRENORPHINE [Interacting]
     Indication: BACK PAIN
     Route: 065
     Dates: start: 20090501
  7. LANSOPRAZOLE [Interacting]
     Indication: DYSPEPSIA
     Route: 065
  8. ROTIGOTINE [Interacting]
     Indication: PARKINSON'S DISEASE
     Route: 061
     Dates: start: 20090801
  9. SELEGILINE [Interacting]
     Indication: PARKINSON'S DISEASE
     Route: 065
     Dates: start: 20100120, end: 20100123

REACTIONS (4)
  - DIPLOPIA [None]
  - DRUG INTERACTION [None]
  - DYSARTHRIA [None]
  - NAUSEA [None]
